FAERS Safety Report 8899972 (Version 1)
Quarter: 2012Q4

REPORT INFORMATION
  Report Type: 
  Country: US (occurrence: US)
  Receive Date: 20121108
  Receipt Date: 20121108
  Transmission Date: 20130627
  Serious: No
  Sender: FDA-Public Use
  Company Number: US-AMGEN-USASP2012023782

PATIENT
  Sex: Female

DRUGS (4)
  1. ENBREL [Suspect]
     Indication: RHEUMATOID ARTHRITIS
     Dosage: 25 mg, 2 times/wk
     Dates: start: 201002, end: 201111
  2. ENBREL [Suspect]
     Dosage: 25 mg, 2 times/wk
     Dates: start: 201201
  3. HUMIRA [Concomitant]
  4. METHOTREXATE [Concomitant]
     Dosage: 7.5 mg, qwk

REACTIONS (1)
  - Drug ineffective [Unknown]
